FAERS Safety Report 6899688-5 (Version None)
Quarter: 2010Q3

REPORT INFORMATION
  Report Type: 
  Country: None (occurrence: None)
  Receive Date: 20100803
  Receipt Date: 20100723
  Transmission Date: 20110219
  Serious: Yes (Death, Hospitalization)
  Sender: FDA-Public Use
  Company Number: US-CELGENEUS-163-21880-10071025

PATIENT
  Sex: Male

DRUGS (13)
  1. REVLIMID [Suspect]
     Indication: MULTIPLE MYELOMA
     Route: 048
     Dates: start: 20100528
  2. REVLIMID [Suspect]
     Route: 048
     Dates: end: 20100706
  3. BACTRIM [Suspect]
     Indication: PRODUCT USED FOR UNKNOWN INDICATION
     Route: 065
     Dates: start: 20100501
  4. ALLOPURINOL [Suspect]
     Indication: HYPERURICAEMIA
     Route: 065
     Dates: start: 20100501
  5. BORTEZOMIB [Concomitant]
     Indication: MULTIPLE MYELOMA
     Route: 065
     Dates: start: 20100511
  6. DEXAMETHASONE [Concomitant]
     Indication: MULTIPLE MYELOMA
     Dosage: HIGH-DOSE
     Route: 048
     Dates: start: 20100511
  7. ASPIRIN [Concomitant]
     Indication: ANTICOAGULANT THERAPY
     Route: 065
  8. OMEPRAZOLE [Concomitant]
     Indication: PRODUCT USED FOR UNKNOWN INDICATION
     Route: 065
  9. SIMVASTATIN [Concomitant]
     Indication: PRODUCT USED FOR UNKNOWN INDICATION
     Route: 065
  10. TYLENOL W/ CODEINE [Concomitant]
     Route: 065
     Dates: start: 20100512
  11. TYLENOL W/ CODEINE [Concomitant]
     Indication: CHEST PAIN
  12. LEVSIN [Concomitant]
     Route: 065
     Dates: start: 20100512
  13. LEVSIN [Concomitant]
     Indication: CHEST PAIN

REACTIONS (7)
  - GASTROINTESTINAL HAEMORRHAGE [None]
  - HERPES ZOSTER [None]
  - ILEUS [None]
  - MUSCULOSKELETAL PAIN [None]
  - NEUROPATHY PERIPHERAL [None]
  - PULMONARY EMBOLISM [None]
  - VASCULITIS [None]
